FAERS Safety Report 17126316 (Version 7)
Quarter: 2020Q2

REPORT INFORMATION
  Report Type: Spontaneous
  Country: JP (occurrence: JP)
  Receive Date: 20191209
  Receipt Date: 20200623
  Transmission Date: 20200713
  Serious: Yes (Hospitalization, Other)
  Sender: FDA-Public Use
  Company Number: JP-ASTELLAS-2019JP021658

PATIENT
  Age: 62 Year
  Sex: Male
  Weight: 50 kg

DRUGS (11)
  1. XTANDI [Suspect]
     Active Substance: ENZALUTAMIDE
     Route: 048
     Dates: start: 20191112, end: 20200608
  2. SYMPROIC [Concomitant]
     Active Substance: NALDEMEDINE
     Indication: PROSTATE CANCER
     Dosage: 0.2 MG, ONCE DAILY
     Route: 048
     Dates: start: 20190829
  3. CALONAL [Concomitant]
     Active Substance: ACETAMINOPHEN
     Indication: PROSTATE CANCER
     Route: 048
     Dates: start: 20191103
  4. XTANDI [Suspect]
     Active Substance: ENZALUTAMIDE
     Indication: HORMONE-REFRACTORY PROSTATE CANCER
     Route: 048
     Dates: start: 20191029, end: 20191111
  5. BELSOMRA [Concomitant]
     Active Substance: SUVOREXANT
     Indication: INSOMNIA
     Route: 048
     Dates: start: 20191009
  6. AZOSEMIDE [Concomitant]
     Active Substance: AZOSEMIDE
     Indication: CARDIAC FAILURE CHRONIC
     Route: 048
     Dates: start: 20190706
  7. CALCIUM LACTATE [Concomitant]
     Active Substance: CALCIUM LACTATE
     Indication: PROSTATE CANCER
     Route: 048
     Dates: start: 20190912
  8. CALFINA [ALFACALCIDOL] [Concomitant]
     Active Substance: ALFACALCIDOL
     Indication: PROSTATE CANCER
     Dosage: 0.25 ?G, THRICE DAILY
     Route: 048
     Dates: start: 20190912
  9. TAKECAB [Concomitant]
     Active Substance: VONOPRAZAN FUMARATE
     Indication: GASTRIC MUCOSAL LESION
     Route: 048
     Dates: start: 20190709
  10. FEBURIC [Concomitant]
     Active Substance: FEBUXOSTAT
     Indication: HYPERURICAEMIA
     Route: 048
     Dates: start: 20190613
  11. OXYCODONE [Concomitant]
     Active Substance: OXYCODONE
     Indication: PROSTATE CANCER
     Route: 048
     Dates: start: 20190626

REACTIONS (5)
  - Cardiac failure [Recovered/Resolved]
  - Prescribed underdose [Unknown]
  - Anaemia [Recovering/Resolving]
  - Fluid retention [Recovering/Resolving]
  - Postrenal failure [Unknown]

NARRATIVE: CASE EVENT DATE: 20191029
